FAERS Safety Report 13730382 (Version 3)
Quarter: 2017Q3

REPORT INFORMATION
  Report Type: Spontaneous
  Country: US (occurrence: US)
  Receive Date: 20170707
  Receipt Date: 20170831
  Transmission Date: 20171127
  Serious: Yes (Death, Hospitalization, Other)
  Sender: FDA-Public Use
  Company Number: US-JNJFOC-20170602228

PATIENT
  Age: 80 Year
  Sex: Male

DRUGS (3)
  1. XARELTO [Suspect]
     Active Substance: RIVAROXABAN
     Indication: ATRIAL FIBRILLATION
     Dosage: 10 AND 15 MG
     Route: 048
     Dates: start: 20120813, end: 20150606
  2. XARELTO [Suspect]
     Active Substance: RIVAROXABAN
     Indication: THROMBOSIS PROPHYLAXIS
     Dosage: 10 AND 15 MG
     Route: 048
     Dates: start: 20120813, end: 20150606
  3. XARELTO [Suspect]
     Active Substance: RIVAROXABAN
     Indication: CEREBROVASCULAR ACCIDENT PROPHYLAXIS
     Dosage: 10 AND 15 MG
     Route: 048
     Dates: start: 20120813, end: 20150606

REACTIONS (9)
  - Rectal haemorrhage [Unknown]
  - Cardiac failure congestive [Fatal]
  - Mouth haemorrhage [Unknown]
  - Epistaxis [Unknown]
  - Upper gastrointestinal haemorrhage [Unknown]
  - Sepsis [Fatal]
  - Disseminated intravascular coagulation [Fatal]
  - Chronic kidney disease [Fatal]
  - Haematuria [Unknown]

NARRATIVE: CASE EVENT DATE: 201303
